FAERS Safety Report 10368590 (Version 3)
Quarter: 2014Q4

REPORT INFORMATION
  Report Type: Spontaneous
  Country: JP (occurrence: JP)
  Receive Date: 20140807
  Receipt Date: 20141124
  Transmission Date: 20150528
  Serious: Yes (Death, Hospitalization)
  Sender: FDA-Public Use
  Company Number: PHHY2010JP095989

PATIENT
  Age: 91 Year
  Sex: Male
  Weight: 53 kg

DRUGS (10)
  1. FEMARA [Suspect]
     Active Substance: LETROZOLE
     Indication: BREAST CANCER MALE
     Dosage: 2.5 MG, DAILY
     Route: 048
     Dates: start: 20100712, end: 201102
  2. NITOROL R [Concomitant]
     Indication: HYPERTENSION
     Dosage: 40 MG, UNK
     Route: 048
     Dates: start: 20091126
  3. ACTOS [Concomitant]
     Active Substance: PIOGLITAZONE HYDROCHLORIDE
     Indication: TYPE 2 DIABETES MELLITUS
     Dosage: 15 MG, UNK
     Route: 048
     Dates: start: 20091129
  4. HERBESSER [Concomitant]
     Active Substance: DILTIAZEM HYDROCHLORIDE
     Indication: HYPERTENSION
     Dosage: 200 MG, UNK
     Route: 048
     Dates: start: 20091126
  5. PROCYLIN [Concomitant]
     Active Substance: BERAPROST SODIUM
     Indication: PERIPHERAL ARTERIAL OCCLUSIVE DISEASE
     Dosage: 60 UG, UNK
     Route: 048
     Dates: start: 20091126
  6. BAYASPIRIN [Concomitant]
     Active Substance: ASPIRIN
     Indication: ANGINA PECTORIS
     Dosage: 100 MG, UNK
     Route: 048
     Dates: start: 20091126
  7. WARFARIN [Concomitant]
     Active Substance: WARFARIN
     Indication: ANGINA PECTORIS
     Dosage: 1 G, UNK
     Route: 048
     Dates: start: 20091126
  8. GASTER [Concomitant]
     Active Substance: FAMOTIDINE
     Indication: CHRONIC GASTRITIS
     Dosage: 40 MG, UNK
     Route: 048
     Dates: start: 20091126
  9. LANIRAPID [Concomitant]
     Active Substance: METILDIGOXIN
     Indication: ANGINA PECTORIS
     Dosage: 0.05 MG, UNK
     Route: 048
     Dates: start: 20091126
  10. ULCERLMIN [Concomitant]
     Active Substance: SUCRALFATE
     Indication: CHRONIC GASTRITIS
     Dosage: 3 G, UNK
     Route: 048

REACTIONS (13)
  - Malaise [Fatal]
  - Dyspnoea [Fatal]
  - Blood pressure decreased [Unknown]
  - Depressed level of consciousness [Unknown]
  - Respiratory failure [Fatal]
  - C-reactive protein increased [Unknown]
  - Oxygen saturation decreased [Fatal]
  - Blood lactate dehydrogenase increased [Unknown]
  - Blood alkaline phosphatase increased [Unknown]
  - Platelet count increased [Unknown]
  - White blood cell count increased [Unknown]
  - Pneumonia [Fatal]
  - Blood urea increased [Unknown]

NARRATIVE: CASE EVENT DATE: 20110201
